FAERS Safety Report 17182285 (Version 3)
Quarter: 2020Q1

REPORT INFORMATION
  Report Type: Report from Study
  Country: CA (occurrence: CA)
  Receive Date: 20191220
  Receipt Date: 20200121
  Transmission Date: 20200409
  Serious: Yes (Other)
  Sender: FDA-Public Use
  Company Number: CA-ROCHE-2497652

PATIENT
  Age: 62 Year
  Sex: Male

DRUGS (1)
  1. TECENTRIQ [Suspect]
     Active Substance: ATEZOLIZUMAB
     Indication: NON-SMALL CELL LUNG CANCER
     Route: 042
     Dates: start: 20191024

REACTIONS (10)
  - General physical health deterioration [Recovering/Resolving]
  - Fatigue [Not Recovered/Not Resolved]
  - Depression [Not Recovered/Not Resolved]
  - Dry mouth [Not Recovered/Not Resolved]
  - Pain [Unknown]
  - Decreased appetite [Recovering/Resolving]
  - Fatigue [Unknown]
  - Pain [Recovering/Resolving]
  - Dyspnoea [Recovering/Resolving]
  - Anxiety [Not Recovered/Not Resolved]

NARRATIVE: CASE EVENT DATE: 20191205
